FAERS Safety Report 22127426 (Version 1)
Quarter: 2023Q1

REPORT INFORMATION
  Report Type: Report from Study
  Country: US (occurrence: US)
  Receive Date: 20230322
  Receipt Date: 20230322
  Transmission Date: 20230417
  Serious: Yes (Hospitalization)
  Sender: FDA-Public Use
  Company Number: US-JNJFOC-20221100946

PATIENT
  Age: 52 Year
  Sex: Female
  Weight: 116.8 kg

DRUGS (4)
  1. EPOPROSTENOL SODIUM [Suspect]
     Active Substance: EPOPROSTENOL SODIUM
     Indication: Pulmonary hypertension
     Dosage: EXPIRY DATE: 31-DEC-2024
     Route: 042
  2. EPOPROSTENOL SODIUM [Suspect]
     Active Substance: EPOPROSTENOL SODIUM
     Indication: Pulmonary arterial hypertension
  3. OPSUMIT [Concomitant]
     Active Substance: MACITENTAN
  4. ADEMPAS [Concomitant]
     Active Substance: RIOCIGUAT

REACTIONS (6)
  - Chest pain [Unknown]
  - Device occlusion [Unknown]
  - Blood potassium decreased [Unknown]
  - Catheter management [Unknown]
  - Product administration interrupted [Unknown]
  - Underdose [Unknown]

NARRATIVE: CASE EVENT DATE: 20221026
